FAERS Safety Report 25431890 (Version 2)
Quarter: 2025Q2

REPORT INFORMATION
  Report Type: Report from Study
  Country: PE (occurrence: PE)
  Receive Date: 20250613
  Receipt Date: 20250625
  Transmission Date: 20250716
  Serious: Yes (Hospitalization, Other)
  Sender: ROCHE
  Company Number: PE-ROCHE-10000159291

PATIENT
  Age: 80 Year
  Sex: Male
  Weight: 62 kg

DRUGS (53)
  1. MABTHERA [Suspect]
     Active Substance: RITUXIMAB
     Indication: Non-Hodgkin^s lymphoma
     Route: 042
     Dates: start: 20241218
  2. MABTHERA [Suspect]
     Active Substance: RITUXIMAB
     Indication: Non-Hodgkin^s lymphoma
     Route: 058
  3. MABTHERA [Suspect]
     Active Substance: RITUXIMAB
     Route: 058
  4. TECENTRIQ [Suspect]
     Active Substance: ATEZOLIZUMAB
     Indication: Product used for unknown indication
     Route: 065
  5. DOXORUBICIN [Suspect]
     Active Substance: DOXORUBICIN
     Indication: Non-Hodgkin^s lymphoma
     Route: 042
  6. DOXORUBICIN [Suspect]
     Active Substance: DOXORUBICIN
     Dosage: DILUTION: SODIUM CHLORIDE 0.9% 500 ML;?DAY OF ADMINISTRATION: DAY 1.
     Route: 058
  7. DOXORUBICIN [Suspect]
     Active Substance: DOXORUBICIN
     Route: 042
  8. DOXORUBICIN [Suspect]
     Active Substance: DOXORUBICIN
     Dosage: DILUTION: SODIUM CHLORIDE 0.9% 500 ML;?DAY OF ADMINISTRATION: DAY 1.
     Route: 058
  9. VINCRISTINE [Suspect]
     Active Substance: VINCRISTINE
     Indication: Non-Hodgkin^s lymphoma
     Route: 042
  10. VINCRISTINE [Suspect]
     Active Substance: VINCRISTINE
     Dosage: DILUTION: SODIUM CHLORIDE 0.9% 500 ML;?DAY OF ADMINISTRATION: DAY 1.
     Route: 058
  11. VINCRISTINE [Suspect]
     Active Substance: VINCRISTINE
     Route: 042
  12. VINCRISTINE [Suspect]
     Active Substance: VINCRISTINE
     Dosage: DILUTION: SODIUM CHLORIDE 0.9% 500 ML;?DAY OF ADMINISTRATION: DAY 1.
     Route: 058
  13. PREDNISONE [Suspect]
     Active Substance: PREDNISONE
     Indication: Non-Hodgkin^s lymphoma
     Dosage: DURATION: 04 DAYS
     Route: 048
  14. PREDNISONE [Suspect]
     Active Substance: PREDNISONE
     Dosage: DURATION: 04 DAYS
     Route: 048
  15. CYCLOPHOSPHAMIDE [Suspect]
     Active Substance: CYCLOPHOSPHAMIDE
     Indication: Non-Hodgkin^s lymphoma
     Route: 042
  16. RANITIDINE [Concomitant]
     Active Substance: RANITIDINE
     Route: 042
  17. RANITIDINE [Concomitant]
     Active Substance: RANITIDINE
     Route: 042
  18. CHLORPHENIRAMINE MALEATE [Concomitant]
     Active Substance: CHLORPHENIRAMINE MALEATE
     Route: 042
  19. CHLORPHENIRAMINE MALEATE [Concomitant]
     Active Substance: CHLORPHENIRAMINE MALEATE
     Route: 042
  20. CHLORPHENIRAMINE MALEATE [Concomitant]
     Active Substance: CHLORPHENIRAMINE MALEATE
     Route: 042
  21. CHLORPHENIRAMINE MALEATE [Concomitant]
     Active Substance: CHLORPHENIRAMINE MALEATE
     Route: 042
  22. ACETAMINOPHEN [Concomitant]
     Active Substance: ACETAMINOPHEN
     Route: 048
  23. ACETAMINOPHEN [Concomitant]
     Active Substance: ACETAMINOPHEN
     Route: 048
  24. DEXAMETHASONE [Concomitant]
     Active Substance: DEXAMETHASONE
     Indication: Chemotherapy
     Route: 042
  25. DEXAMETHASONE [Concomitant]
     Active Substance: DEXAMETHASONE
     Route: 042
  26. DEXAMETHASONE [Concomitant]
     Active Substance: DEXAMETHASONE
     Dosage: DEXAMETHASONE TABLET X 4MG ?DAYS: 2 DAYS. DAY 2 AND DAY 3.
     Route: 048
  27. DEXAMETHASONE [Concomitant]
     Active Substance: DEXAMETHASONE
     Route: 042
  28. DEXAMETHASONE [Concomitant]
     Active Substance: DEXAMETHASONE
     Route: 042
  29. DEXAMETHASONE [Concomitant]
     Active Substance: DEXAMETHASONE
     Dosage: DEXAMETHASONE TABLET X 4MG ?DAYS: 2 DAYS. DAY 2 AND DAY 3.
     Route: 048
  30. GRANISETRON [Concomitant]
     Active Substance: GRANISETRON
     Indication: Chemotherapy
     Route: 042
  31. GRANISETRON [Concomitant]
     Active Substance: GRANISETRON
     Route: 042
  32. FILGRASTIM [Concomitant]
     Active Substance: FILGRASTIM
     Indication: Non-Hodgkin^s lymphoma
     Route: 058
  33. FILGRASTIM [Concomitant]
     Active Substance: FILGRASTIM
     Dosage: DILUTION: SODIUM CHLORIDE 0.9% 500 ML;?DAY OF ADMINISTRATION: DAY 1.
     Route: 058
  34. FILGRASTIM [Concomitant]
     Active Substance: FILGRASTIM
     Route: 058
  35. FILGRASTIM [Concomitant]
     Active Substance: FILGRASTIM
     Dosage: DILUTION: SODIUM CHLORIDE 0.9% 500 ML;?DAY OF ADMINISTRATION: DAY 1.
     Route: 058
  36. DIMENHYDRINATE [Concomitant]
     Active Substance: DIMENHYDRINATE
     Indication: Nausea
     Dosage: DOSE: 50 MG CONDITIONAL TO NAUSEA EVERY 8 HOURS. DAYS: 5 DAYS.
     Route: 048
  37. DIMENHYDRINATE [Concomitant]
     Active Substance: DIMENHYDRINATE
     Dosage: DOSE: 50 MG CONDITIONAL TO NAUSEA EVERY 8 HOURS. DAYS: 5 DAYS.
     Route: 048
  38. ONDANSETRON [Concomitant]
     Active Substance: ONDANSETRON
  39. ONDANSETRON [Concomitant]
     Active Substance: ONDANSETRON
     Route: 042
  40. ONDANSETRON [Concomitant]
     Active Substance: ONDANSETRON
     Route: 048
  41. ONDANSETRON [Concomitant]
     Active Substance: ONDANSETRON
  42. ONDANSETRON [Concomitant]
     Active Substance: ONDANSETRON
     Route: 042
  43. ONDANSETRON [Concomitant]
     Active Substance: ONDANSETRON
     Route: 048
  44. OMEPRAZOLE [Concomitant]
     Active Substance: OMEPRAZOLE
     Dosage: OMEPRAZOLE 2 (UNIT NOT LEGIBLE) DAILY.
  45. OMEPRAZOLE [Concomitant]
     Active Substance: OMEPRAZOLE
     Dosage: OMEPRAZOLE 2 (UNIT NOT LEGIBLE) DAILY.
  46. APREPITANT [Concomitant]
     Active Substance: APREPITANT
     Indication: Chemotherapy
     Route: 048
  47. APREPITANT [Concomitant]
     Active Substance: APREPITANT
     Dosage: DAYS: 2 DAYS. DAY 2 AND DAY 3.
     Route: 048
  48. APREPITANT [Concomitant]
     Active Substance: APREPITANT
     Route: 048
  49. APREPITANT [Concomitant]
     Active Substance: APREPITANT
     Dosage: DAYS: 2 DAYS. DAY 2 AND DAY 3.
     Route: 048
  50. GEMCITABINE [Concomitant]
     Active Substance: GEMCITABINE
     Indication: Chemotherapy
     Route: 042
  51. GEMCITABINE [Concomitant]
     Active Substance: GEMCITABINE
     Route: 042
  52. OXALIPLATIN [Concomitant]
     Active Substance: OXALIPLATIN
     Indication: Chemotherapy
     Route: 042
  53. OXALIPLATIN [Concomitant]
     Active Substance: OXALIPLATIN
     Route: 042

REACTIONS (11)
  - Liver injury [Unknown]
  - Intestinal obstruction [Recovering/Resolving]
  - Intestinal resection [Recovering/Resolving]
  - Neoplasm malignant [Unknown]
  - Lung neoplasm malignant [Unknown]
  - Lung neoplasm [Unknown]
  - Arthritis [Recovered/Resolved]
  - Haemorrhage [Unknown]
  - Cerebral haemorrhage [Unknown]
  - Fatigue [Unknown]
  - Peripheral swelling [Unknown]

NARRATIVE: CASE EVENT DATE: 20250411
